FAERS Safety Report 12801788 (Version 2)
Quarter: 2016Q4

REPORT INFORMATION
  Report Type: Report from Study
  Country: NL (occurrence: NL)
  Receive Date: 20161003
  Receipt Date: 20161005
  Transmission Date: 20170207
  Serious: Yes (Hospitalization)
  Sender: FDA-Public Use
  Company Number: NL-ROCHE-1833452

PATIENT
  Age: 63 Year
  Sex: Female
  Weight: 107 kg

DRUGS (20)
  1. RECONVAL K1 [Concomitant]
     Indication: RASH
     Route: 062
     Dates: start: 20160817, end: 20160831
  2. FRAGMIN [Concomitant]
     Active Substance: DALTEPARIN SODIUM
     Indication: EMBOLISM
     Route: 065
     Dates: start: 20160216
  3. NACL .9% [Concomitant]
     Route: 065
     Dates: start: 20160102, end: 20160104
  4. PARACETAMOL [Concomitant]
     Active Substance: ACETAMINOPHEN
     Indication: BACK PAIN
     Route: 065
     Dates: start: 20160817
  5. 5-FLUOROURACIL [Suspect]
     Active Substance: FLUOROURACIL
     Indication: COLORECTAL CANCER METASTATIC
     Dosage: DATE OF MOST RECENT DOSE (3400MG): 14/SEP/2016
     Route: 042
     Dates: start: 20160511
  6. METOPROLOL. [Concomitant]
     Active Substance: METOPROLOL
     Route: 065
     Dates: start: 20151020
  7. CEFTAZIDIM [Concomitant]
     Active Substance: CEFTAZIDIME
     Indication: NEUTROPENIA
     Route: 065
     Dates: start: 20160212, end: 20160214
  8. METOCLOPRAMIDE. [Concomitant]
     Active Substance: METOCLOPRAMIDE
     Route: 065
     Dates: start: 20151007
  9. NACL .9% [Concomitant]
     Indication: VOMITING
     Route: 065
     Dates: start: 20160314, end: 20160321
  10. AUGMENTIN [Concomitant]
     Active Substance: AMOXICILLIN\CLAVULANATE POTASSIUM
     Indication: NEUTROPENIA
     Route: 065
     Dates: start: 20160214, end: 20160222
  11. VEMURAFENIB [Suspect]
     Active Substance: VEMURAFENIB
     Indication: COLORECTAL CANCER METASTATIC
     Dosage: DATE OF MOST RECENT DOSE (960MG BID): 15/SEP/2016
     Route: 048
     Dates: start: 20160511
  12. EPREX [Concomitant]
     Active Substance: ERYTHROPOIETIN
     Route: 065
     Dates: start: 20151012
  13. METOCLOPRAMIDE. [Concomitant]
     Active Substance: METOCLOPRAMIDE
     Indication: VOMITING
     Route: 065
     Dates: start: 20160102, end: 20160104
  14. EUTHYROX [Concomitant]
     Active Substance: LEVOTHYROXINE SODIUM
     Route: 065
     Dates: start: 20150630
  15. METOCLOPRAMIDE. [Concomitant]
     Active Substance: METOCLOPRAMIDE
     Indication: NAUSEA
     Route: 065
     Dates: start: 20160212, end: 20160215
  16. OMEPRAZOL [Concomitant]
     Active Substance: OMEPRAZOLE
     Route: 065
     Dates: start: 20150814
  17. CETUXIMAB [Suspect]
     Active Substance: CETUXIMAB
     Indication: COLORECTAL CANCER METASTATIC
     Dosage: DATE OF MOST RECENT DOSE: 14/SEP/2016 AT 12:30
     Route: 042
     Dates: start: 20160511
  18. CALMURID (NETHERLANDS) [Concomitant]
     Indication: RASH
     Dosage: 1
     Route: 065
     Dates: start: 20160831
  19. PAROXETINE. [Concomitant]
     Active Substance: PAROXETINE
     Route: 065
     Dates: start: 20150814
  20. PREGABALIN. [Concomitant]
     Active Substance: PREGABALIN
     Indication: BACK PAIN
     Route: 065
     Dates: start: 20160831

REACTIONS (1)
  - Upper respiratory tract infection [Recovered/Resolved]

NARRATIVE: CASE EVENT DATE: 20160915
